FAERS Safety Report 9847123 (Version 1)
Quarter: 2014Q1

REPORT INFORMATION
  Report Type: Spontaneous
  Country: US (occurrence: US)
  Receive Date: 20140127
  Receipt Date: 20140127
  Transmission Date: 20141002
  Serious: Yes (Other)
  Sender: FDA-Public Use
  Company Number: CHPA2014US001113

PATIENT
  Age: 48 Year
  Sex: Male

DRUGS (2)
  1. CONTROL PLP [Suspect]
     Indication: SMOKING CESSATION THERAPY
     Dosage: 14 MG, UNK
     Route: 062
     Dates: start: 20140115
  2. CONTROL PLP [Suspect]
     Dosage: 14 MG, QD
     Route: 062

REACTIONS (2)
  - Diabetes mellitus [Not Recovered/Not Resolved]
  - Expired drug administered [Unknown]
